FAERS Safety Report 11350419 (Version 1)
Quarter: 2015Q3

REPORT INFORMATION
  Report Type: Spontaneous
  Country: JP (occurrence: JP)
  Receive Date: 20150807
  Receipt Date: 20150807
  Transmission Date: 20151125
  Serious: Yes (Death, Other)
  Sender: FDA-Public Use
  Company Number: PHJP2015JP013407

PATIENT

DRUGS (1)
  1. AFINITOR [Suspect]
     Active Substance: EVEROLIMUS
     Indication: METASTATIC RENAL CELL CARCINOMA
     Dosage: UNK
     Route: 048

REACTIONS (5)
  - Platelet count decreased [Unknown]
  - Gastrointestinal haemorrhage [Unknown]
  - Death [Fatal]
  - Renal failure [Unknown]
  - Interstitial lung disease [Unknown]
